FAERS Safety Report 24138399 (Version 2)
Quarter: 2024Q3

REPORT INFORMATION
  Report Type: Spontaneous
  Country: SE (occurrence: SE)
  Receive Date: 20240725
  Receipt Date: 20240918
  Transmission Date: 20241017
  Serious: Yes (Other)
  Sender: PFIZER
  Company Number: SE-Orion Corporation ORION PHARMA-TREX2024-0194

PATIENT
  Age: 81 Year
  Sex: Female

DRUGS (1)
  1. METHOTREXATE [Suspect]
     Active Substance: METHOTREXATE
     Indication: Psoriasis
     Dosage: 15 MG, WEEKLY
     Dates: start: 202401, end: 202406

REACTIONS (6)
  - Uterine cancer [Unknown]
  - Breast enlargement [Unknown]
  - Abdominal distension [Unknown]
  - Fatigue [Recovering/Resolving]
  - Intentional product misuse [Unknown]
  - Intentional dose omission [Unknown]

NARRATIVE: CASE EVENT DATE: 20240101
